FAERS Safety Report 5918587-6 (Version None)
Quarter: 2008Q4

REPORT INFORMATION
  Report Type: 
  Country: None (occurrence: None)
  Receive Date: 20081010
  Receipt Date: 20080924
  Transmission Date: 20090506
  Serious: Yes (Other)
  Sender: FDA-Public Use
  Company Number: B0539842A

PATIENT
  Sex: 0

DRUGS (1)
  1. LAMIVUDINE [Suspect]
     Indication: HEPATITIS B

REACTIONS (2)
  - CONDITION AGGRAVATED [None]
  - HEPATITIS B [None]
